FAERS Safety Report 21636159 (Version 2)
Quarter: 2023Q1

REPORT INFORMATION
  Report Type: Report from Study
  Country: IT (occurrence: IT)
  Receive Date: 20221123
  Receipt Date: 20230228
  Transmission Date: 20230418
  Serious: Yes (Death, Hospitalization, Other)
  Sender: FDA-Public Use
  Company Number: IT-CELLTRION INC.-2022IT019546

PATIENT

DRUGS (26)
  1. RITUXIMAB [Suspect]
     Active Substance: RITUXIMAB
     Indication: B-cell lymphoma
     Dosage: 37MG/M2 EVERY 3 WEEKS DATE OF LAST DOSE PRIOR TO EVENT: 21/MAR/2022
     Route: 042
     Dates: start: 20211123, end: 20220321
  2. RITUXIMAB [Suspect]
     Active Substance: RITUXIMAB
     Indication: Diffuse large B-cell lymphoma
  3. CYCLOPHOSPHAMIDE [Suspect]
     Active Substance: CYCLOPHOSPHAMIDE
     Indication: Diffuse large B-cell lymphoma
     Dosage: 750 MILLIGRAM/SQ. METER, EVERY 3 WEEKS
     Route: 042
     Dates: start: 20211123, end: 20220321
  4. METHYLPREDNISOLONE SODIUM SUCCINATE [Suspect]
     Active Substance: METHYLPREDNISOLONE SODIUM SUCCINATE
     Indication: Diffuse large B-cell lymphoma
     Dosage: 80 MILLIGRAM
     Route: 042
     Dates: start: 20211123, end: 20211123
  5. DOXORUBICIN HYDROCHLORIDE [Suspect]
     Active Substance: DOXORUBICIN HYDROCHLORIDE
     Indication: Diffuse large B-cell lymphoma
     Dosage: 50 MILLIGRAM/SQ. METER, EVERY 3 WEEKS
     Route: 042
     Dates: start: 20211123, end: 20220321
  6. EPCORITAMAB [Suspect]
     Active Substance: EPCORITAMAB
     Indication: Diffuse large B-cell lymphoma
     Dosage: 0.8 MILLIGRAM
     Route: 058
     Dates: start: 20211201, end: 20211201
  7. EPCORITAMAB [Suspect]
     Active Substance: EPCORITAMAB
     Dosage: 48 MILLIGRAM, 1/WEEK
     Route: 058
     Dates: start: 20211208, end: 20220211
  8. EPCORITAMAB [Suspect]
     Active Substance: EPCORITAMAB
     Dosage: 48 MILLIGRAM, EVERY 4 WEEKS
     Route: 058
     Dates: start: 20220412, end: 20220517
  9. EPCORITAMAB [Suspect]
     Active Substance: EPCORITAMAB
     Dosage: 48 MILLIGRAM, EVERY 3 WEEKS
     Route: 058
     Dates: start: 20220218, end: 20220321
  10. EPCORITAMAB [Suspect]
     Active Substance: EPCORITAMAB
     Dosage: PRIOR TO THE EVENTS ONSET, THE PATIENT RECEIVED CYCLE 8 OF EPCORITAMAB WITH THE LATEST DOSE ADMINIST
     Route: 058
     Dates: start: 20211124, end: 20211124
  11. VINCRISTINE SULFATE [Suspect]
     Active Substance: VINCRISTINE SULFATE
     Indication: Diffuse large B-cell lymphoma
     Dosage: 1.4 MILLIGRAM/SQ. METER, EVERY 3 WEEKS
     Route: 042
     Dates: start: 20211123, end: 20220321
  12. LOPERAMIDE [Concomitant]
     Active Substance: LOPERAMIDE
     Dosage: UNK
     Dates: start: 20220330
  13. TRIMETHOPRIM [Concomitant]
     Active Substance: TRIMETHOPRIM
  14. EDOXABAN [Concomitant]
     Active Substance: EDOXABAN
     Dosage: UNK
     Dates: start: 20220429
  15. OMEPRAZOLE [Concomitant]
     Active Substance: OMEPRAZOLE
  16. SULFAMETHOXAZOLE [Concomitant]
     Active Substance: SULFAMETHOXAZOLE
  17. PREGABALIN [Concomitant]
     Active Substance: PREGABALIN
  18. ALLOPURINOL [Concomitant]
     Active Substance: ALLOPURINOL
     Dosage: UNK
     Dates: start: 20211112
  19. METFORMIN HYDROCHLORIDE [Concomitant]
     Active Substance: METFORMIN HYDROCHLORIDE
  20. ESOMEPRAZOLE [Concomitant]
     Active Substance: ESOMEPRAZOLE
  21. ERYTHROPOIETIN [Concomitant]
     Active Substance: ERYTHROPOIETIN
     Dosage: UNK
     Dates: start: 20211126
  22. NEBIVOLOL [Concomitant]
     Active Substance: NEBIVOLOL
  23. VALACYCLOVIR [Concomitant]
     Active Substance: VALACYCLOVIR HYDROCHLORIDE
  24. GLICLAZIDE [Concomitant]
     Active Substance: GLICLAZIDE
     Dosage: UNK
     Dates: start: 20211120
  25. JANUMET [Concomitant]
     Active Substance: METFORMIN HYDROCHLORIDE\SITAGLIPTIN PHOSPHATE
     Dosage: UNK
     Dates: start: 20220204
  26. ACYCLOVIR [Concomitant]
     Active Substance: ACYCLOVIR
     Dosage: UNK
     Dates: start: 20220105

REACTIONS (2)
  - Cardiac failure [Fatal]
  - Cytopenia [Not Recovered/Not Resolved]

NARRATIVE: CASE EVENT DATE: 20220911
